FAERS Safety Report 9251988 (Version 1)
Quarter: 2013Q2

REPORT INFORMATION
  Report Type: Spontaneous
  Country: US (occurrence: US)
  Receive Date: 20130424
  Receipt Date: 20130424
  Transmission Date: 20140414
  Serious: No
  Sender: FDA-Public Use
  Company Number: US-PFIZER INC-2013123834

PATIENT
  Age: 75 Year
  Sex: Female

DRUGS (1)
  1. XANAX [Suspect]
     Indication: ANXIETY
     Dosage: 2 MG, AS NEEDED

REACTIONS (3)
  - Poor quality drug administered [Unknown]
  - Product quality issue [Unknown]
  - Dizziness [Unknown]
